FAERS Safety Report 4498008-3 (Version None)
Quarter: 2004Q4

REPORT INFORMATION
  Report Type: 
  Country: None (occurrence: None)
  Receive Date: 20041109
  Receipt Date: 20041109
  Transmission Date: 20050328
  Serious: Yes (Hospitalization)
  Sender: FDA-Public Use
  Company Number: None

PATIENT

DRUGS (8)
  1. WARFARIN [Suspect]
     Indication: DEEP VENOUS THROMBOSIS PROPHYLAXIS
     Dosage: 20MG PO Q WK
     Route: 048
     Dates: start: 20040429
  2. ASPIRIN [Concomitant]
  3. METOPROLOL [Concomitant]
  4. FUROSEMIDE [Concomitant]
  5. HYDROCHLOROTHIAZIDE [Concomitant]
  6. ISOSORBIDE DINITRATE [Concomitant]
  7. GLYBURIDE [Concomitant]
  8. LISINOPRIL [Concomitant]

REACTIONS (6)
  - DIARRHOEA [None]
  - FAECES DISCOLOURED [None]
  - HAEMATEMESIS [None]
  - INTERNATIONAL NORMALISED RATIO INCREASED [None]
  - MARKEDLY REDUCED DIETARY INTAKE [None]
  - MELAENA [None]
